FAERS Safety Report 5277361-7 (Version None)
Quarter: 2007Q1

REPORT INFORMATION
  Report Type: 
  Country: None (occurrence: None)
  Receive Date: 20070327
  Receipt Date: 20070322
  Transmission Date: 20070707
  Serious: Yes (Other)
  Sender: FDA-Public Use
  Company Number: 2007UW05677

PATIENT
  Age: 48 Year
  Sex: Female
  Weight: 76.7 kg

DRUGS (2)
  1. NEXIUM [Suspect]
     Dosage: UP TO THREE TIMES A DAY
     Route: 048
     Dates: start: 20010101
  2. PREVACID [Concomitant]

REACTIONS (1)
  - BREAST CANCER [None]
